FAERS Safety Report 14533424 (Version 2)
Quarter: 2018Q1

REPORT INFORMATION
  Report Type: Spontaneous
  Country: FR (occurrence: FR)
  Receive Date: 20180215
  Receipt Date: 20180227
  Transmission Date: 20180509
  Serious: Yes (Death, Hospitalization)
  Sender: FDA-Public Use
  Company Number: FR-MERCK KGAA-2041994

PATIENT
  Age: 22 Year
  Sex: Female
  Weight: 49 kg

DRUGS (1)
  1. NOVOTHYROX [Suspect]
     Active Substance: LEVOTHYROXINE SODIUM
     Indication: AUTOIMMUNE THYROIDITIS
     Route: 048
     Dates: start: 2017

REACTIONS (12)
  - Hyperhidrosis [Fatal]
  - Swelling [Fatal]
  - Nervousness [Fatal]
  - Palpitations [Fatal]
  - Pallor [Fatal]
  - Dyspnoea [Fatal]
  - Vomiting [Fatal]
  - Abdominal pain [Fatal]
  - Affective disorder [Fatal]
  - Decreased appetite [Fatal]
  - Diffuse alopecia [Fatal]
  - Weight increased [Fatal]

NARRATIVE: CASE EVENT DATE: 201708
